FAERS Safety Report 20669911 (Version 1)
Quarter: 2022Q2

REPORT INFORMATION
  Report Type: Spontaneous
  Country: US (occurrence: US)
  Receive Date: 20220404
  Receipt Date: 20220404
  Transmission Date: 20220721
  Serious: Yes (Disabling, Other)
  Sender: FDA-Public Use
  Company Number: US-BRISTOL-MYERS SQUIBB COMPANY-2022-014480

PATIENT
  Age: 43 Year
  Sex: Male

DRUGS (6)
  1. ELIQUIS [Suspect]
     Active Substance: APIXABAN
     Indication: Deep vein thrombosis
     Route: 065
  2. ELIQUIS [Suspect]
     Active Substance: APIXABAN
     Indication: Thrombosis prophylaxis
     Dosage: FOR SEVEN DAYS
     Route: 065
  3. ELIQUIS [Suspect]
     Active Substance: APIXABAN
     Dosage: FOR SIX MONTHS
     Route: 048
  4. ELIQUIS [Suspect]
     Active Substance: APIXABAN
     Dosage: TRANSITIONED TO A PROPHYLAXIS DOSE AFTER SIX MONTHS OF TREATMENT FOR DVT
     Route: 048
  5. ASPIRIN [Suspect]
     Active Substance: ASPIRIN
     Indication: Thrombosis prophylaxis
     Dosage: DAILY
     Route: 065
  6. ASPIRIN [Suspect]
     Active Substance: ASPIRIN
     Route: 065

REACTIONS (1)
  - Compartment syndrome [Recovering/Resolving]
